FAERS Safety Report 22296201 (Version 1)
Quarter: 2023Q2

REPORT INFORMATION
  Report Type: Spontaneous
  Country: IT (occurrence: IT)
  Receive Date: 20230508
  Receipt Date: 20230508
  Transmission Date: 20230721
  Serious: Yes (Hospitalization)
  Sender: FDA-Public Use
  Company Number: IT-TEVA-2023-IT-2885531

PATIENT
  Age: 40 Year
  Sex: Female

DRUGS (18)
  1. ETOPOSIDE [Suspect]
     Active Substance: ETOPOSIDE
     Indication: Acute myeloid leukaemia
     Dosage: ON DAYS 1-5, 100 MG/M2
     Route: 065
  2. CLOFARABINE [Suspect]
     Active Substance: CLOFARABINE
     Indication: Acute myeloid leukaemia
     Dosage: ON DAYS 1-5, 30 MG/M2
     Route: 065
     Dates: start: 201709
  3. CYCLOSPORINE [Suspect]
     Active Substance: CYCLOSPORINE
     Indication: Acute myeloid leukaemia
     Route: 065
     Dates: start: 201709
  4. AMIKACIN [Suspect]
     Active Substance: AMIKACIN
     Indication: Nocardiosis
     Route: 065
  5. LEVOFLOXACIN [Suspect]
     Active Substance: LEVOFLOXACIN
     Indication: Nocardiosis
     Route: 065
  6. LINEZOLID [Suspect]
     Active Substance: LINEZOLID
     Indication: Nocardiosis
     Route: 065
  7. TIGECYCLINE [Suspect]
     Active Substance: TIGECYCLINE
     Indication: Nocardiosis
     Route: 065
  8. IDARUBICIN [Suspect]
     Active Substance: IDARUBICIN
     Indication: Acute myeloid leukaemia
     Dosage: ON DAYS 1, 3 AND 5, 10 MG/M2
     Route: 065
  9. CYTARABINE [Suspect]
     Active Substance: CYTARABINE
     Indication: Acute myeloid leukaemia
     Dosage: ON DAYS 1-7, 100 MG/M2
     Route: 065
  10. CYTARABINE [Suspect]
     Active Substance: CYTARABINE
     Dosage: ON DAYS 1-5, 2000 MG/M2
     Route: 065
     Dates: start: 201709
  11. SULFAMETHOXAZOLE\TRIMETHOPRIM [Suspect]
     Active Substance: SULFAMETHOXAZOLE\TRIMETHOPRIM
     Indication: Nocardiosis
     Route: 065
  12. AVIBACTAM SODIUM\CEFTAZIDIME [Suspect]
     Active Substance: AVIBACTAM SODIUM\CEFTAZIDIME
     Indication: Nocardiosis
     Route: 065
  13. CEFTOLOZANE SULFATE\TAZOBACTAM SODIUM [Suspect]
     Active Substance: CEFTOLOZANE SULFATE\TAZOBACTAM SODIUM
     Indication: Nocardiosis
     Route: 065
  14. IMIPENEM [Suspect]
     Active Substance: IMIPENEM
     Indication: Nocardiosis
     Route: 065
  15. DOXORUBICIN [Concomitant]
     Active Substance: DOXORUBICIN
     Indication: Invasive ductal breast carcinoma
     Dosage: 60 MG/M2 DAILY; ONCE A DAY
     Route: 065
  16. CYCLOPHOSPHAMIDE [Concomitant]
     Active Substance: CYCLOPHOSPHAMIDE
     Indication: Invasive ductal breast carcinoma
     Dosage: 600 MG/M2 DAILY; FOR 4 CYCLES, ONCE A DAY
     Route: 065
  17. PACLITAXEL [Concomitant]
     Active Substance: PACLITAXEL
     Indication: Invasive ductal breast carcinoma
     Dosage: 80 MG/M2
     Route: 065
  18. TAMOXIFEN [Concomitant]
     Active Substance: TAMOXIFEN
     Indication: Invasive ductal breast carcinoma
     Route: 065

REACTIONS (3)
  - Nocardiosis [Unknown]
  - Pneumonia [Recovered/Resolved]
  - Drug ineffective [Unknown]
